FAERS Safety Report 7505527-1 (Version None)
Quarter: 2011Q2

REPORT INFORMATION
  Report Type: 
  Country: None (occurrence: None)
  Receive Date: 20110526
  Receipt Date: 20110518
  Transmission Date: 20111010
  Serious: Yes (Other)
  Sender: FDA-Public Use
  Company Number: JP-ASTELLAS-2011JP003401

PATIENT
  Age: 57 Year
  Sex: Female

DRUGS (5)
  1. METHOTREXATE [Concomitant]
     Indication: PROPHYLAXIS AGAINST GRAFT VERSUS HOST DISEASE
     Route: 065
  2. G-CSF [Concomitant]
     Indication: BONE MARROW CONDITIONING REGIMEN
     Route: 065
  3. ATG RABBIT [Concomitant]
     Dosage: 1.25 MG/KG, UNKNOWN/D
     Route: 065
  4. PROGRAF [Suspect]
     Indication: PROPHYLAXIS AGAINST GRAFT VERSUS HOST DISEASE
     Route: 065
  5. CYTARABINE [Concomitant]
     Dosage: 2400 MG/M2, UNKNOWN/D
     Route: 065

REACTIONS (3)
  - CHRONIC GRAFT VERSUS HOST DISEASE [None]
  - DRUG INEFFECTIVE [None]
  - CYTOMEGALOVIRUS CHORIORETINITIS [None]
